FAERS Safety Report 16259531 (Version 2)
Quarter: 2019Q2

REPORT INFORMATION
  Report Type: Spontaneous
  Country: US (occurrence: US)
  Receive Date: 20190501
  Receipt Date: 20190509
  Transmission Date: 20190711
  Serious: Yes (Other)
  Sender: FDA-Public Use
  Company Number: US-ELI_LILLY_AND_COMPANY-US201904014908

PATIENT
  Sex: Male

DRUGS (2)
  1. HUMULIN N [Suspect]
     Active Substance: INSULIN HUMAN
     Indication: STEROID DIABETES
     Dosage: 60 U, TID
     Route: 065
  2. HUMALOG [Suspect]
     Active Substance: INSULIN LISPRO
     Indication: STEROID DIABETES
     Dosage: 30 U, OTHER (PER MEAL)
     Route: 065

REACTIONS (7)
  - Leukaemia recurrent [Recovering/Resolving]
  - Myocardial infarction [Unknown]
  - Coma [Unknown]
  - Intentional product misuse [Unknown]
  - Herpes zoster [Unknown]
  - Bone marrow transplant rejection [Unknown]
  - Diabetic coma [Recovered/Resolved]

NARRATIVE: CASE EVENT DATE: 20190223
